FAERS Safety Report 21696424 (Version 1)
Quarter: 2022Q4

REPORT INFORMATION
  Report Type: Report from Study
  Country: US (occurrence: US)
  Receive Date: 20221207
  Receipt Date: 20221207
  Transmission Date: 20230113
  Serious: Yes (Other)
  Sender: FDA-Public Use
  Company Number: US-ABBVIE-4226135

PATIENT
  Sex: Female

DRUGS (2)
  1. RINVOQ [Suspect]
     Active Substance: UPADACITINIB
     Indication: Product used for unknown indication
     Route: 048
  2. DICLOXACILLIN [Concomitant]
     Active Substance: DICLOXACILLIN
     Indication: Product used for unknown indication

REACTIONS (6)
  - Nephrectomy [Unknown]
  - Urticaria [Unknown]
  - Dermatitis contact [Unknown]
  - Drug eruption [Unknown]
  - Infection [Unknown]
  - Therapeutic product effect incomplete [Unknown]
